FAERS Safety Report 25236682 (Version 4)
Quarter: 2025Q2

REPORT INFORMATION
  Report Type: Spontaneous
  Country: US (occurrence: US)
  Receive Date: 20250424
  Receipt Date: 20250527
  Transmission Date: 20250716
  Serious: No
  Sender: PFIZER
  Company Number: US-PFIZER INC-202500084756

PATIENT
  Age: 14 Year
  Sex: Male

DRUGS (1)
  1. GENOTROPIN [Suspect]
     Active Substance: SOMATROPIN
     Dosage: 1.8 MG, DAILY
     Route: 058
     Dates: start: 20250415

REACTIONS (3)
  - Incorrect dose administered by device [Unknown]
  - Device use issue [Unknown]
  - Device leakage [Unknown]

NARRATIVE: CASE EVENT DATE: 20250101
